FAERS Safety Report 5066777-X (Version None)
Quarter: 2006Q3

REPORT INFORMATION
  Report Type: 
  Country: None (occurrence: None)
  Receive Date: 20060801
  Receipt Date: 20060609
  Transmission Date: 20061208
  Serious: Yes (Other)
  Sender: FDA-Public Use
  Company Number: US-ROCHE-451526

PATIENT
  Age: 21 Year
  Sex: Female

DRUGS (2)
  1. ACCUTANE [Suspect]
     Indication: DRUG USE FOR UNKNOWN INDICATION
     Route: 065
     Dates: start: 20060215, end: 20060305
  2. ORTHO TRI-CYCLEN [Concomitant]
     Dosage: COMBINED PILL (ESTROGEN AND PROGESTERONE). MISSED ONE PILL ON 12 APRIL 2006.
     Route: 048

REACTIONS (5)
  - ABORTION INDUCED [None]
  - DRUG DOSE OMISSION [None]
  - DRUG EXPOSURE BEFORE PREGNANCY [None]
  - DRUG EXPOSURE DURING PREGNANCY [None]
  - PREGNANCY ON ORAL CONTRACEPTIVE [None]
